FAERS Safety Report 21884374 (Version 1)
Quarter: 2023Q1

REPORT INFORMATION
  Report Type: Spontaneous
  Country: SA (occurrence: SA)
  Receive Date: 20230119
  Receipt Date: 20230119
  Transmission Date: 20230417
  Serious: Yes (Death)
  Sender: FDA-Public Use
  Company Number: SA-AstraZeneca-2023A014092

PATIENT
  Age: 0 Year
  Sex: Male

DRUGS (1)
  1. SYNAGIS [Suspect]
     Active Substance: PALIVIZUMAB
     Indication: Antiviral prophylaxis
     Dosage: 15MG /KG IM
     Dates: start: 20221013, end: 20221208

REACTIONS (3)
  - Death [Fatal]
  - Treatment delayed [Unknown]
  - Chronic respiratory disease [Unknown]

NARRATIVE: CASE EVENT DATE: 20221229
